FAERS Safety Report 14689725 (Version 1)
Quarter: 2018Q1

REPORT INFORMATION
  Report Type: Spontaneous
  Country: BR (occurrence: BR)
  Receive Date: 20180328
  Receipt Date: 20180328
  Transmission Date: 20180509
  Serious: Yes (Other)
  Sender: FDA-Public Use
  Company Number: BR-PFIZER INC-2018121415

PATIENT
  Age: 56 Year
  Sex: Female

DRUGS (3)
  1. FRONTAL XR [Suspect]
     Active Substance: ALPRAZOLAM
     Dosage: UNK
     Dates: start: 20180318
  2. DOBEVEN [Concomitant]
     Indication: PAIN IN EXTREMITY
     Dosage: UNK
  3. DOBEVEN [Concomitant]
     Indication: VARICOSE VEIN

REACTIONS (12)
  - Tremor [Unknown]
  - Suicidal ideation [Unknown]
  - Dizziness [Unknown]
  - Panic disorder [Unknown]
  - Dry mouth [Unknown]
  - Movement disorder [Unknown]
  - Tachycardia [Unknown]
  - Insomnia [Unknown]
  - Memory impairment [Unknown]
  - Hyperhidrosis [Unknown]
  - Headache [Unknown]
  - Depression [Unknown]

NARRATIVE: CASE EVENT DATE: 20180319
